FAERS Safety Report 7549952-1 (Version None)
Quarter: 2011Q2

REPORT INFORMATION
  Report Type: 
  Country: None (occurrence: None)
  Receive Date: 20110615
  Receipt Date: 20110531
  Transmission Date: 20111010
  Serious: Yes (Other)
  Sender: FDA-Public Use
  Company Number: JP-WATSON-2011-08073

PATIENT
  Age: 48 Year
  Sex: Male

DRUGS (5)
  1. PREDNISOLONE [Suspect]
     Indication: IMMUNOSUPPRESSION
     Dosage: 0.5 MG/KG, UNK
  2. SULFAMETHOXAZOLE AND TRIMETHOPRIM [Suspect]
     Indication: OBLITERATIVE BRONCHIOLITIS
     Dosage: 320/1600 MG DAILY
  3. CORTICOSTEROID NOS [Suspect]
     Indication: OBLITERATIVE BRONCHIOLITIS
     Dosage: UNK
  4. CYCLOSPORINE [Suspect]
     Indication: PROPHYLAXIS AGAINST TRANSPLANT REJECTION
     Dosage: 3 MG/KG, DAILY
     Route: 042
  5. SULFAMETHOXAZOLE AND TRIMETHOPRIM [Suspect]
     Dosage: 80/400 MG DAILY

REACTIONS (3)
  - DRUG INEFFECTIVE [None]
  - RENAL IMPAIRMENT [None]
  - NOCARDIOSIS [None]
